FAERS Safety Report 5069902-X (Version None)
Quarter: 2006Q3

REPORT INFORMATION
  Report Type: 
  Country: None (occurrence: None)
  Receive Date: 20060721
  Receipt Date: 20060712
  Transmission Date: 20061208
  Serious: Yes (Other)
  Sender: FDA-Public Use
  Company Number: 200610893BYL

PATIENT
  Age: 69 Year
  Sex: Male

DRUGS (1)
  1. PLASMANATE [Suspect]
     Indication: VOLUME BLOOD
     Dosage: INTRAVENOUS DRIP
     Route: 041
     Dates: start: 20060712

REACTIONS (1)
  - ANAPHYLACTIC REACTION [None]
